FAERS Safety Report 20844930 (Version 1)
Quarter: 2022Q2

REPORT INFORMATION
  Report Type: Spontaneous
  Country: US (occurrence: None)
  Receive Date: 20220517
  Receipt Date: 20220517
  Transmission Date: 20220721
  Serious: Yes (Other)
  Sender: FDA-Public Use
  Company Number: None

PATIENT
  Age: 19 Year
  Sex: Female
  Weight: 93.15 kg

DRUGS (1)
  1. STELARA [Suspect]
     Active Substance: USTEKINUMAB
     Indication: Crohn^s disease
     Dosage: OTHER FREQUENCY : ONE TIME DOSE;?
     Route: 041
     Dates: start: 20220517, end: 20220517

REACTIONS (6)
  - Infusion related reaction [None]
  - Paraesthesia [None]
  - Paraesthesia [None]
  - Paraesthesia oral [None]
  - Flushing [None]
  - Heart rate decreased [None]

NARRATIVE: CASE EVENT DATE: 20220517
